FAERS Safety Report 6511254-X (Version None)
Quarter: 2009Q4

REPORT INFORMATION
  Report Type: 
  Country: None (occurrence: None)
  Receive Date: 20091222
  Receipt Date: 20090318
  Transmission Date: 20100525
  Serious: No
  Sender: FDA-Public Use
  Company Number: US-ASTRAZENECA-2009UW07024

PATIENT
  Age: 69 Year
  Sex: Male
  Weight: 67.1 kg

DRUGS (3)
  1. CRESTOR [Suspect]
     Route: 048
  2. ZOTRAL [Concomitant]
  3. VITAMINS [Concomitant]

REACTIONS (2)
  - INSOMNIA [None]
  - THIRST [None]
